FAERS Safety Report 24650015 (Version 1)
Quarter: 2024Q4

REPORT INFORMATION
  Report Type: Report from Study
  Country: US (occurrence: US)
  Receive Date: 20241122
  Receipt Date: 20241122
  Transmission Date: 20250115
  Serious: Yes (Other)
  Sender: ACADIA PHARMACEUTICALS
  Company Number: US-ACADIA PHARMACEUTICALS INC.-ACA-2024-PIM-007383

PATIENT
  Sex: Female

DRUGS (9)
  1. NUPLAZID [Suspect]
     Active Substance: PIMAVANSERIN TARTRATE
     Indication: Parkinson^s disease
     Dosage: 34 MILLIGRAM, QD
     Route: 048
     Dates: start: 20231226
  2. ATORVASTATIN [Concomitant]
     Active Substance: ATORVASTATIN
     Dosage: 40 MILLIGRAM
  3. FOSAMAX [Concomitant]
     Active Substance: ALENDRONATE SODIUM
     Dosage: 70 MILLIGRAM (4PK)
  4. LOSARTAN [Concomitant]
     Active Substance: LOSARTAN
     Dosage: 50 MILLIGRAM
  5. METOPROLOL SUCCINATE [Concomitant]
     Active Substance: METOPROLOL SUCCINATE
     Dosage: 25 MILLIGRAM
  6. NAPROXEN [Concomitant]
     Active Substance: NAPROXEN
     Dosage: 500 MILLIGRAM
  7. RYTARY [Concomitant]
     Active Substance: CARBIDOPA\LEVODOPA
     Dosage: 61.25-245 MG
  8. OCUVITE EXTRA [Concomitant]
     Dosage: EYES
  9. NOURIANZ [Concomitant]
     Active Substance: ISTRADEFYLLINE

REACTIONS (1)
  - Hallucination [Unknown]
